FAERS Safety Report 9620359 (Version 1)
Quarter: 2013Q4

REPORT INFORMATION
  Report Type: Spontaneous
  Country: US (occurrence: US)
  Receive Date: 20131014
  Receipt Date: 20131014
  Transmission Date: 20140711
  Serious: No
  Sender: FDA-Public Use
  Company Number: US-009507513-1310USA005993

PATIENT
  Sex: 0

DRUGS (23)
  1. LISINOPRIL [Suspect]
  2. TRUVADA [Concomitant]
     Dosage: 1 DF, QD (200-300MG)
     Dates: start: 20130409
  3. TOPIRAMATE [Concomitant]
     Dosage: 1 DF, BID
     Dates: start: 20130409
  4. TUMS [Concomitant]
     Dosage: UNK, PRN
     Route: 048
     Dates: start: 20130409
  5. ACETAMINOPHEN [Concomitant]
     Dosage: UNK, PRN
     Route: 048
     Dates: start: 20130409
  6. CYCLOBENZAPRINE HYDROCHLORIDE [Concomitant]
     Dosage: 1 DF AT BEDTIME, PRN
     Route: 048
     Dates: start: 20130409
  7. ALBUTEROL SULFATE [Concomitant]
     Indication: COUGH
     Dosage: 2 PUFFS EVERY 4 HOURS, PRN
     Route: 048
     Dates: start: 20130515
  8. ALBUTEROL SULFATE [Concomitant]
     Indication: WHEEZING
  9. ZOLPIDEM TARTRATE [Concomitant]
     Dosage: 1 DF, HS
     Route: 048
     Dates: start: 20130409
  10. ISENTRESS [Concomitant]
     Dosage: 1 DF, BID
     Route: 048
     Dates: start: 20130409
  11. KLOR-CON M20 [Concomitant]
     Dosage: 1 DF, QD
     Route: 048
     Dates: start: 20130503
  12. SUMATRIPTAN SUCCINATE [Concomitant]
     Indication: HEADACHE
     Dosage: 1 TABLET BY AT ONSET OF HA, MAY REPEAT IN 2 HRS IF HA HAS PERSISTS. MAX 2 PER DAY
     Route: 048
     Dates: start: 20130910
  13. RELPAX [Concomitant]
     Indication: HEADACHE
     Dosage: 1 TABLET AT ONSET OF HA, MAY REPEAT DOSE IN 2HRS IF HA  PERSISTS, MAX 2 PER DAY
     Route: 048
     Dates: start: 20130829
  14. LYRICA [Concomitant]
     Dosage: 1 DF, BID
     Route: 048
     Dates: start: 20130906
  15. LORATADINE [Concomitant]
     Indication: HYPERSENSITIVITY
     Dosage: 1 DF ONCE DAILY, PRN
     Route: 048
     Dates: start: 20130829
  16. IC TRIAM/HCTZ [Concomitant]
     Dosage: 1 DF, QD  (37.5/25)
     Dates: start: 20130409
  17. METOPROLOL SUCCINATE ER [Concomitant]
     Dosage: 1 DF, QD
     Route: 048
     Dates: start: 20130409
  18. D400 [Concomitant]
     Dosage: 1 DF, QD
     Route: 048
     Dates: start: 20130409
  19. ATRIPLA [Concomitant]
  20. CRIXIVAN [Concomitant]
     Route: 048
  21. TRAMADOL HYDROCHLORIDE [Concomitant]
  22. RITONAVIR [Concomitant]
  23. OPIATO [Concomitant]

REACTIONS (1)
  - Drug hypersensitivity [Unknown]
